FAERS Safety Report 8649476 (Version 3)
Quarter: 2015Q1

REPORT INFORMATION
  Report Type: Spontaneous
  Country: US (occurrence: US)
  Receive Date: 20120705
  Receipt Date: 20150323
  Transmission Date: 20150721
  Serious: Yes (Other)
  Sender: FDA-Public Use
  Company Number: US-BAYER-2012-064885

PATIENT
  Age: 29 Year
  Sex: Female
  Weight: 61.22 kg

DRUGS (34)
  1. ADVAIR DISKUS [Concomitant]
     Active Substance: FLUTICASONE PROPIONATE\SALMETEROL XINAFOATE
     Dosage: 250/50
  2. ABILIFY [Concomitant]
     Active Substance: ARIPIPRAZOLE
     Dosage: 5 MG, UNK
  3. FLUCONAZOLE. [Concomitant]
     Active Substance: FLUCONAZOLE
     Dosage: 150 MG, UNK
  4. SINGULAIR [Concomitant]
     Active Substance: MONTELUKAST SODIUM
     Dosage: 10 MG, UNK
  5. NYSTATIN W/TRIAMCINOLONE [NYSTATIN,TRIAMCINOLONE ACETONIDE] [Concomitant]
  6. TRETINOIN. [Concomitant]
     Active Substance: TRETINOIN
     Dosage: 0.025 %, UNK
     Route: 061
  7. TRIAMCINOLONE [TRIAMCINOLONE] [Concomitant]
     Dosage: 0.1 %, UNK
  8. FINACEA [Concomitant]
     Active Substance: AZELAIC ACID
  9. DETROL [Concomitant]
     Active Substance: TOLTERODINE TARTRATE
     Dosage: 1 MG, UNK
  10. NITROFURANTOIN. [Concomitant]
     Active Substance: NITROFURANTOIN
     Dosage: 50-100 MG
  11. CLONAZEPAM. [Concomitant]
     Active Substance: CLONAZEPAM
     Dosage: 0.5- 2 MG
  12. FEXOFENADINE [Concomitant]
     Active Substance: FEXOFENADINE\FEXOFENADINE HYDROCHLORIDE
     Dosage: 180 MG, UNK
  13. ALCLOMETASONE [Concomitant]
     Active Substance: ALCLOMETASONE
     Dosage: 0.05 %, UNK
  14. ASTEPRO [Concomitant]
     Active Substance: AZELASTINE HYDROCHLORIDE
     Dosage: 137 MG, UNK
     Route: 045
  15. NYSTATIN. [Concomitant]
     Active Substance: NYSTATIN
  16. CLOTRIMAZOLE W/BETAMETHASONE DIPROPIONAT [Concomitant]
     Dosage: 45 G, UNK
  17. KLONOPIN [Concomitant]
     Active Substance: CLONAZEPAM
  18. AZITHROMYCIN [Concomitant]
     Active Substance: AZITHROMYCIN ANHYDROUS
     Dosage: 250-500 MG
  19. CLINDAMYCIN [Concomitant]
     Active Substance: CLINDAMYCIN\CLINDAMYCIN PHOSPHATE
     Dosage: 1 %, UNK
  20. YAZ [Suspect]
     Active Substance: DROSPIRENONE\ETHINYL ESTRADIOL
     Dosage: UNK
     Dates: start: 2007, end: 201006
  21. YASMIN [Suspect]
     Active Substance: DROSPIRENONE\ETHINYL ESTRADIOL
     Dosage: UNK
     Dates: start: 2007, end: 201006
  22. VALTREX [Concomitant]
     Active Substance: VALACYCLOVIR HYDROCHLORIDE
     Dosage: 1 G, UNK
  23. CIPROFLOXACIN. [Concomitant]
     Active Substance: CIPROFLOXACIN
     Dosage: 250 MG, UNK
  24. RETIN-A MICRO [Concomitant]
     Active Substance: TRETINOIN
     Dosage: 0.04 %, UNK
  25. ALDARA [Concomitant]
     Active Substance: IMIQUIMOD
     Dosage: 5 %, UNK
  26. ELIDEL [Concomitant]
     Active Substance: PIMECROLIMUS
     Dosage: 1 %, UNK
  27. EMERGEN-C [Concomitant]
     Active Substance: VITAMINS
  28. ZOLPIDEM [Concomitant]
     Active Substance: ZOLPIDEM\ZOLPIDEM TARTRATE
     Dosage: 10 MG, UNK
  29. ABILIFY [Concomitant]
     Active Substance: ARIPIPRAZOLE
     Dosage: 2 MG, UNK
  30. OMEPRAZOLE. [Concomitant]
     Active Substance: OMEPRAZOLE
     Dosage: 20 MG, UNK
  31. BENZOYL PEROXIDE. [Concomitant]
     Active Substance: BENZOYL PEROXIDE
     Dosage: 5 %, UNK
  32. GEODON [Concomitant]
     Active Substance: ZIPRASIDONE HYDROCHLORIDE\ZIPRASIDONE MESYLATE
     Dosage: 20 MG, UNK
  33. ZOVIRAX [Concomitant]
     Active Substance: ACYCLOVIR
     Dosage: 5 %, UNK
  34. AMBIEN [Concomitant]
     Active Substance: ZOLPIDEM TARTRATE
     Dosage: 10 MG, UNK

REACTIONS (7)
  - Injury [None]
  - Anxiety [None]
  - Pain [None]
  - Psychological trauma [None]
  - Emotional distress [None]
  - Stress [None]
  - Deep vein thrombosis [None]

NARRATIVE: CASE EVENT DATE: 2010
